FAERS Safety Report 8320056-3 (Version None)
Quarter: 2012Q2

REPORT INFORMATION
  Report Type: 
  Country: None (occurrence: None)
  Receive Date: 20120427
  Receipt Date: 20120315
  Transmission Date: 20120825
  Serious: Yes (Other)
  Sender: FDA-Public Use
  Company Number: CHPA2012US009294

PATIENT
  Sex: Female

DRUGS (3)
  1. GAS-X EXTRA STRENGTH SOFTGELS [Suspect]
     Indication: FLATULENCE
     Dosage: 1 SOFT GEL BEFORE OR AFTER DINNER ALMOST EVERY DAY
     Route: 048
     Dates: start: 20110101, end: 20120401
  2. CALCIUM CARBONATE [Suspect]
     Indication: FLATULENCE
     Dosage: UNK, QD
     Route: 048
     Dates: end: 20120401
  3. BEANO [Concomitant]
     Indication: FLATULENCE
     Dosage: UNK, PRN
     Route: 048
     Dates: end: 20120401

REACTIONS (4)
  - POLYP COLORECTAL [None]
  - RECTAL HAEMORRHAGE [None]
  - HAEMORRHOIDS [None]
  - FATIGUE [None]
